FAERS Safety Report 7993812-9 (Version None)
Quarter: 2011Q4

REPORT INFORMATION
  Report Type: 
  Country: None (occurrence: None)
  Receive Date: 20111220
  Receipt Date: 20111212
  Transmission Date: 20120403
  Serious: No
  Sender: FDA-Public Use
  Company Number: US-BIOGENIDEC-2011BI047191

PATIENT
  Sex: Female

DRUGS (2)
  1. BLADDER MEDICATION [Concomitant]
     Indication: PRODUCT USED FOR UNKNOWN INDICATION
  2. TYSABRI [Suspect]
     Indication: MULTIPLE SCLEROSIS
     Route: 042
     Dates: start: 20100920

REACTIONS (3)
  - HYPOAESTHESIA [None]
  - VULVOVAGINAL DRYNESS [None]
  - DRY MOUTH [None]
